FAERS Safety Report 8902104 (Version 2)
Quarter: 2013Q1

REPORT INFORMATION
  Report Type: Spontaneous
  Country: US (occurrence: US)
  Receive Date: 20121112
  Receipt Date: 20130116
  Transmission Date: 20140127
  Serious: No
  Sender: FDA-Public Use
  Company Number: US-009507513-1211USA003286

PATIENT
  Age: 38 Year
  Sex: Female

DRUGS (5)
  1. DULERA [Suspect]
     Indication: COUGH
     Dosage: 200/5 MCG, 2 PUFFS, BID
     Route: 055
     Dates: start: 20121022, end: 20121104
  2. DULERA [Suspect]
     Indication: WHEEZING
  3. PREDNISONE [Concomitant]
  4. VENTOLIN (ALBUTEROL) [Concomitant]
  5. TESSALON PERLES [Concomitant]

REACTIONS (7)
  - Drug ineffective [Unknown]
  - Decreased appetite [Recovering/Resolving]
  - Asthenia [Recovering/Resolving]
  - Sinusitis [Recovering/Resolving]
  - Headache [Recovering/Resolving]
  - Nausea [Recovering/Resolving]
  - Somnolence [Unknown]
